FAERS Safety Report 4501187-2 (Version None)
Quarter: 2004Q4

REPORT INFORMATION
  Report Type: 
  Country: None (occurrence: None)
  Receive Date: 20041115
  Receipt Date: 20041026
  Transmission Date: 20050328
  Serious: Yes (Hospitalization)
  Sender: FDA-Public Use
  Company Number: JP-NOVOPROD-240140

PATIENT
  Age: 70 Year
  Sex: Female

DRUGS (4)
  1. PENFILL 30R CHU [Suspect]
     Indication: DIABETES MELLITUS INSULIN-DEPENDENT
     Dosage: 32 IU, QD
     Route: 058
  2. GLUCOBAY [Concomitant]
     Dosage: 300 MG, QD
     Route: 048
  3. ACECOL [Concomitant]
     Dosage: 2 MG, QD
     Route: 048
  4. EVAMYL [Concomitant]
     Dosage: 1 MG, QD
     Route: 048

REACTIONS (3)
  - ABDOMINAL PAIN LOWER [None]
  - BILE DUCT STONE [None]
  - HAEMOLYTIC ANAEMIA [None]
